FAERS Safety Report 24880572 (Version 1)
Quarter: 2025Q1

REPORT INFORMATION
  Report Type: Spontaneous
  Country: US (occurrence: US)
  Receive Date: 20250123
  Receipt Date: 20250123
  Transmission Date: 20250409
  Serious: No
  Sender: GILEAD
  Company Number: US-GILEAD-2025-0701008

PATIENT
  Age: 63 Year
  Sex: Male

DRUGS (6)
  1. LENACAPAVIR [Suspect]
     Active Substance: LENACAPAVIR
     Indication: Product used for unknown indication
     Route: 065
     Dates: end: 20240719
  2. LENACAPAVIR [Suspect]
     Active Substance: LENACAPAVIR
     Route: 065
     Dates: end: 202410
  3. SYMTUZA [Concomitant]
     Active Substance: COBICISTAT\DARUNAVIR\EMTRICITABINE\TENOFOVIR ALAFENAMIDE
  4. TIVICAY [Concomitant]
     Active Substance: DOLUTEGRAVIR SODIUM
  5. PIFELTRO [Concomitant]
     Active Substance: DORAVIRINE
  6. RUKOBIA [Concomitant]
     Active Substance: FOSTEMSAVIR TROMETHAMINE

REACTIONS (1)
  - Inappropriate schedule of product administration [Recovered/Resolved]
